FAERS Safety Report 16196954 (Version 1)
Quarter: 2019Q2

REPORT INFORMATION
  Report Type: Spontaneous
  Country: OM (occurrence: OM)
  Receive Date: 20190415
  Receipt Date: 20190415
  Transmission Date: 20190711
  Serious: Yes (Other)
  Sender: FDA-Public Use
  Company Number: OM-HIKMA PHARMACEUTICALS USA INC.-OM-H14001-19-02380

PATIENT
  Age: 37 Year
  Sex: Female

DRUGS (1)
  1. LEVONIC (LEVOFLOXACIN) [Suspect]
     Active Substance: LEVOFLOXACIN
     Indication: POLYURIA
     Route: 042
     Dates: start: 20190325, end: 20190325

REACTIONS (4)
  - Pruritus [Recovered/Resolved]
  - Erythema [Recovered/Resolved]
  - Swelling [Recovered/Resolved]
  - Off label use [Not Recovered/Not Resolved]

NARRATIVE: CASE EVENT DATE: 20190325
